FAERS Safety Report 26183075 (Version 1)
Quarter: 2025Q4

REPORT INFORMATION
  Report Type: Spontaneous
  Country: US (occurrence: US)
  Receive Date: 20251221
  Receipt Date: 20251221
  Transmission Date: 20260118
  Serious: No
  Sender: ACCORD
  Company Number: US-Accord-511106

PATIENT
  Sex: Female

DRUGS (5)
  1. UDENYCA [Suspect]
     Active Substance: PEGFILGRASTIM-CBQV
     Indication: Breast cancer
  2. UDENYCA [Suspect]
     Active Substance: PEGFILGRASTIM-CBQV
     Indication: Breast cancer
  3. DOXORUBICIN [Suspect]
     Active Substance: DOXORUBICIN
     Indication: Breast cancer
  4. DOXORUBICIN [Suspect]
     Active Substance: DOXORUBICIN
     Indication: Breast cancer
  5. LOSARTAN [Suspect]
     Active Substance: LOSARTAN
     Indication: Product used for unknown indication
     Dosage: ONCE A WEEK OR SO

REACTIONS (12)
  - Hypotension [Unknown]
  - Flushing [Recovering/Resolving]
  - Dyspnoea [Unknown]
  - Malaise [Unknown]
  - Visual impairment [Unknown]
  - Heart rate increased [Unknown]
  - Hypotension [Unknown]
  - Flushing [Recovering/Resolving]
  - Dyspnoea [Unknown]
  - Malaise [Unknown]
  - Visual impairment [Unknown]
  - Heart rate increased [Unknown]
